FAERS Safety Report 5709378-X (Version None)
Quarter: 2008Q2

REPORT INFORMATION
  Report Type: 
  Country: None (occurrence: None)
  Receive Date: 20080417
  Receipt Date: 20080417
  Transmission Date: 20081010
  Serious: Yes (Disabling)
  Sender: FDA-Public Use
  Company Number: None

PATIENT
  Sex: Male
  Weight: 90.7194 kg

DRUGS (3)
  1. ZETIA [Suspect]
     Indication: ILL-DEFINED DISORDER
     Dosage: 10 MG DAILY DAILY
     Dates: start: 20070115
  2. EXTRA STRENGTH TYLENOL [Concomitant]
  3. PREDNISONE [Concomitant]

REACTIONS (10)
  - ASTHENIA [None]
  - BACK PAIN [None]
  - FATIGUE [None]
  - INFLUENZA [None]
  - MOBILITY DECREASED [None]
  - MUSCULOSKELETAL CHEST PAIN [None]
  - MUSCULOSKELETAL PAIN [None]
  - NECK PAIN [None]
  - PAIN IN EXTREMITY [None]
  - WALKING AID USER [None]
